FAERS Safety Report 21184757 (Version 2)
Quarter: 2022Q3

REPORT INFORMATION
  Report Type: Spontaneous
  Country: BG (occurrence: BG)
  Receive Date: 20220808
  Receipt Date: 20220929
  Transmission Date: 20221026
  Serious: Yes (Hospitalization, Other)
  Sender: FDA-Public Use
  Company Number: BG-PFM-2022-06087

PATIENT

DRUGS (1)
  1. PROPRANOLOL HYDROCHLORIDE [Suspect]
     Active Substance: PROPRANOLOL HYDROCHLORIDE
     Indication: Infantile haemangioma
     Dosage: 1.5 MG/KG, BID (2/DAY)
     Route: 048
     Dates: start: 202107, end: 20220720

REACTIONS (10)
  - Seizure [Recovered/Resolved]
  - Hyperhidrosis [Recovered/Resolved]
  - Body temperature decreased [Recovered/Resolved]
  - Muscle rigidity [Recovered/Resolved]
  - Hypoglycaemia [Recovered/Resolved]
  - Increased appetite [Recovered/Resolved]
  - Intentional product misuse [Unknown]
  - Product administered to patient of inappropriate age [Unknown]
  - Product use issue [Unknown]
  - Off label use [Unknown]

NARRATIVE: CASE EVENT DATE: 20220721
